FAERS Safety Report 9264494 (Version 5)
Quarter: 2013Q3

REPORT INFORMATION
  Report Type: Spontaneous
  Country: DK (occurrence: DK)
  Receive Date: 20130501
  Receipt Date: 20130708
  Transmission Date: 20140515
  Serious: Yes (Other)
  Sender: FDA-Public Use
  Company Number: PHHY2013DK040756

PATIENT
  Age: 62 Year
  Sex: Female

DRUGS (45)
  1. CARBOPLATIN [Suspect]
     Indication: PRODUCT USED FOR UNKNOWN INDICATION
  2. VINORELBINE [Suspect]
     Indication: PRODUCT USED FOR UNKNOWN INDICATION
     Dosage: 50 MG, UNK
     Route: 042
     Dates: start: 20051209
  3. VINORELBINE [Suspect]
     Dosage: 50 MG, UNK
     Route: 042
     Dates: start: 20060220
  4. VINORELBINE [Suspect]
     Dosage: 55 MG, UNK
     Route: 042
     Dates: start: 20060313
  5. VINORELBINE [Suspect]
     Dosage: 55 MG, UNK
     Route: 042
     Dates: start: 20060403
  6. VINORELBINE [Suspect]
     Dosage: 55 MG, UNK
     Dates: start: 20060515
  7. VINORELBINE [Suspect]
     Dosage: 55 MG,
     Dates: start: 20060515
  8. HERCEPTIN [Suspect]
     Indication: PRODUCT USED FOR UNKNOWN INDICATION
     Dosage: 500 MG, UNK
     Route: 042
     Dates: start: 20041122
  9. HERCEPTIN [Suspect]
     Dosage: 550 MG, UNK
     Route: 042
     Dates: start: 20051209
  10. HERCEPTIN [Suspect]
     Dates: start: 20060127
  11. HERCEPTIN [Suspect]
     Dosage: 400 MG, UNK
     Route: 042
     Dates: start: 20060220
  12. HERCEPTIN [Suspect]
     Dosage: 400 MG, UNK
     Route: 042
     Dates: start: 20060313
  13. HERCEPTIN [Suspect]
     Dosage: 400 MG, UNK
     Route: 042
     Dates: start: 20060403
  14. HERCEPTIN [Suspect]
     Dosage: 1800 MG, 500 MG MORNING AND 1800 MG EVENINGS
  15. HERCEPTIN [Suspect]
     Dosage: 390 MG, UNK
     Route: 042
  16. HERCEPTIN [Suspect]
     Dosage: 2 MG/KG, UNK
  17. HERCEPTIN [Suspect]
     Dosage: 270 MG, UNK
     Route: 042
  18. HERCEPTIN [Suspect]
     Dosage: 400 MG, UNK
     Route: 065
     Dates: start: 20080904
  19. HERCEPTIN [Suspect]
     Dosage: 270 MG, EVERY TWO WEEKS
     Dates: start: 20081030, end: 20081124
  20. HERCEPTIN [Suspect]
     Dosage: 400 MG, UNK
     Route: 042
     Dates: start: 20060127
  21. HERCEPTIN [Suspect]
     Dosage: 270 MG, EVERY 2 WEEKS
     Route: 065
     Dates: start: 20081030, end: 20081124
  22. HERCEPTIN [Suspect]
     Dosage: 2 MG/KG, UNK
     Route: 042
     Dates: start: 2008
  23. HERCEPTIN [Suspect]
     Dates: start: 20120507
  24. XELODA [Suspect]
     Indication: PRODUCT USED FOR UNKNOWN INDICATION
     Dosage: 2 G, BID
  25. XELODA [Suspect]
     Dosage: 1.5 G, BID
  26. XELODA [Suspect]
     Dosage: 1800 MG
     Route: 065
  27. XELODA [Suspect]
     Dosage: 3.14 G, BID
  28. AVASTIN [Suspect]
     Indication: PRODUCT USED FOR UNKNOWN INDICATION
     Dosage: 10 MG/KG, UNK
     Route: 065
  29. AVASTIN [Suspect]
     Dosage: 10 MG/KG, EVERY 2 WEEKS
     Route: 065
     Dates: start: 200902
  30. TAXOTERE [Suspect]
     Indication: PRODUCT USED FOR UNKNOWN INDICATION
     Dosage: 130 MG, UNK
     Route: 042
     Dates: start: 20041123
  31. TAXOL [Suspect]
     Indication: PRODUCT USED FOR UNKNOWN INDICATION
     Dosage: 80 MG/M2, UNK
     Route: 065
     Dates: start: 2008
  32. TAXOL [Suspect]
     Dosage: 120 MG, QW
     Route: 065
     Dates: start: 20081030, end: 20081124
  33. TAXOL [Suspect]
     Dosage: 110 MG/M2, UNK
     Route: 065
  34. TAXOL [Suspect]
     Dosage: 200 MG, UNK
     Route: 042
     Dates: start: 20080904
  35. TYVERB [Suspect]
     Indication: PRODUCT USED FOR UNKNOWN INDICATION
     Dosage: 1250 MG, QD
     Dates: start: 20090925, end: 201104
  36. TYVERB [Suspect]
     Dosage: 750 MG, UNK
     Route: 065
     Dates: start: 20120430
  37. TAVEGYL [Concomitant]
     Route: 065
  38. ZANTAC [Concomitant]
  39. SOLU-MEDROL [Concomitant]
  40. TEMESTA [Concomitant]
  41. PREDNISOLON [Concomitant]
  42. KYTRIL [Concomitant]
     Dosage: 1 MG, UNK
     Route: 065
  43. EMPERAL [Concomitant]
     Route: 065
  44. ZOFRAN [Concomitant]
  45. CORODIL [Concomitant]

REACTIONS (38)
  - Palmar-plantar erythrodysaesthesia syndrome [Recovering/Resolving]
  - Dysaesthesia [Unknown]
  - Abdominal discomfort [Recovering/Resolving]
  - Neurological symptom [Unknown]
  - Skin ulcer [Unknown]
  - Chest pain [Unknown]
  - Skin fissures [Recovered/Resolved]
  - Nasal ulcer [Recovered/Resolved]
  - Lip swelling [Unknown]
  - Cheilitis [Unknown]
  - Malaise [Recovered/Resolved]
  - Rash pustular [Unknown]
  - Local swelling [Unknown]
  - Ejection fraction decreased [Unknown]
  - Diarrhoea [Unknown]
  - Erythema [Unknown]
  - Paraesthesia [Unknown]
  - Calcium ionised increased [Unknown]
  - Malignant neoplasm progression [Not Recovered/Not Resolved]
  - Sensory disturbance [Unknown]
  - Dysgeusia [Recovering/Resolving]
  - Headache [Recovering/Resolving]
  - Fatigue [Unknown]
  - Dyspnoea [Unknown]
  - Heart rate irregular [Recovering/Resolving]
  - Dry mouth [Unknown]
  - Nail disorder [Recovered/Resolved]
  - Fluid retention [Not Recovered/Not Resolved]
  - Lymphoedema [Recovered/Resolved]
  - Sleep disorder [Unknown]
  - Myalgia [Unknown]
  - Cough [Unknown]
  - Vulvovaginal dryness [Recovering/Resolving]
  - Influenza like illness [Recovering/Resolving]
  - Constipation [Unknown]
  - Neutropenia [Unknown]
  - Nausea [Recovering/Resolving]
  - Drug ineffective [Unknown]
